FAERS Safety Report 5059503-1 (Version None)
Quarter: 2006Q3

REPORT INFORMATION
  Report Type: 
  Country: None (occurrence: None)
  Receive Date: 20060724
  Receipt Date: 20060614
  Transmission Date: 20061208
  Serious: Yes (Other)
  Sender: FDA-Public Use
  Company Number: PHNU2006DE02273

PATIENT
  Age: 63 Year
  Sex: Female
  Weight: 65 kg

DRUGS (10)
  1. ZOMETA [Suspect]
     Indication: METASTASES TO BONE
     Dosage: 4 MG, QMO
     Dates: start: 20040826
  2. TAMOXIFEN [Concomitant]
     Dosage: 30 MG, QD
     Route: 048
     Dates: start: 19970101, end: 20040801
  3. FEMARA [Concomitant]
     Dosage: 2.5 MG, QD
     Route: 048
     Dates: start: 20040801, end: 20051101
  4. VIVINOX [Concomitant]
     Indication: RESTLESSNESS
     Route: 048
  5. NORMOC [Concomitant]
     Indication: RESTLESSNESS
     Route: 048
  6. ZOLOFT [Concomitant]
     Route: 048
  7. FASLODEX [Concomitant]
     Dosage: 250 MG, QMO
     Route: 030
     Dates: start: 20051101
  8. MIRTAZAPINE [Concomitant]
     Route: 065
  9. TRANSTEC TTS [Concomitant]
     Dosage: 35 UG, Q72H
     Route: 062
  10. NOVAMINSULFON ^LICHTENSTEIN^ [Concomitant]
     Dosage: 30 - 30 - 40 DRPS/DAY
     Route: 048

REACTIONS (9)
  - CHEST PAIN [None]
  - CONTUSION [None]
  - DECREASED APPETITE [None]
  - FALL [None]
  - MALIGNANT NEOPLASM PROGRESSION [None]
  - MUSCULOSKELETAL PAIN [None]
  - OSTEONECROSIS [None]
  - PAIN IN EXTREMITY [None]
  - WEIGHT DECREASED [None]
